FAERS Safety Report 5578629-7 (Version None)
Quarter: 2007Q4

REPORT INFORMATION
  Report Type: 
  Country: None (occurrence: None)
  Receive Date: 20071228
  Receipt Date: 20071228
  Transmission Date: 20080405
  Serious: Yes (Life-Threatening)
  Sender: FDA-Public Use
  Company Number: None

PATIENT
  Sex: Female
  Weight: 56.6996 kg

DRUGS (1)
  1. VERAPAMIL [Suspect]
     Indication: ATRIAL TACHYCARDIA
     Dosage: 80MG
     Dates: start: 20031112, end: 20040510

REACTIONS (1)
  - TACHYCARDIA [None]
